FAERS Safety Report 20552515 (Version 1)
Quarter: 2022Q1

REPORT INFORMATION
  Report Type: Spontaneous
  Country: US (occurrence: None)
  Receive Date: 20220303
  Receipt Date: 20220303
  Transmission Date: 20220423
  Serious: Yes (Hospitalization)
  Sender: FDA-Public Use
  Company Number: None

PATIENT
  Sex: Female
  Weight: 90.72 kg

DRUGS (13)
  1. EVEROLIMUS [Suspect]
     Active Substance: EVEROLIMUS
     Indication: Breast cancer
     Dosage: FREQUENCY : DAILY;?
     Route: 048
     Dates: start: 20220114
  2. ANASTRAZOLE [Concomitant]
  3. ASCORBIC ACID [Concomitant]
     Active Substance: ASCORBIC ACID
  4. VITAMIN B COMPLEX [Concomitant]
  5. BIOTIN [Concomitant]
  6. CALCIUM+VITAMIN d [Concomitant]
  7. LISINOPRIL [Concomitant]
     Active Substance: LISINOPRIL
  8. METFORMIN [Concomitant]
  9. MS CONTIN [Concomitant]
  10. NARCAN [Concomitant]
  11. TUMERIC [Concomitant]
  12. VITAMIN D [Concomitant]
  13. ZINC [Concomitant]

REACTIONS (2)
  - COVID-19 [None]
  - Therapy interrupted [None]
